FAERS Safety Report 20391115 (Version 1)
Quarter: 2022Q1

REPORT INFORMATION
  Report Type: Spontaneous
  Country: US (occurrence: None)
  Receive Date: 20220127
  Receipt Date: 20220127
  Transmission Date: 20220423
  Serious: No
  Sender: FDA-Public Use
  Company Number: None

PATIENT
  Sex: Female
  Weight: 97.52 kg

DRUGS (9)
  1. SPRYCEL [Suspect]
     Active Substance: DASATINIB
     Indication: Chronic myeloid leukaemia
     Dosage: FREQUENCY : DAILY;?
     Route: 048
  2. SPRYCEL [Suspect]
     Active Substance: DASATINIB
     Indication: Philadelphia chromosome positive
  3. ALBUTEROL [Concomitant]
     Active Substance: ALBUTEROL
  4. COREG [Concomitant]
     Active Substance: CARVEDILOL
  5. HYZAAR [Concomitant]
     Active Substance: HYDROCHLOROTHIAZIDE\LOSARTAN POTASSIUM
  6. LEVEMIR [Concomitant]
     Active Substance: INSULIN DETEMIR
  7. PRAVASTATIN [Concomitant]
     Active Substance: PRAVASTATIN
  8. ULTRAM [Concomitant]
     Active Substance: TRAMADOL HYDROCHLORIDE
  9. WARFARIN [Concomitant]
     Active Substance: WARFARIN

REACTIONS (4)
  - Pneumonia [None]
  - Platelet count decreased [None]
  - White blood cell count decreased [None]
  - Therapy interrupted [None]
